FAERS Safety Report 9072037 (Version 1)
Quarter: 2013Q1

REPORT INFORMATION
  Report Type: Spontaneous
  Country: US (occurrence: US)
  Receive Date: 20130129
  Receipt Date: 20130129
  Transmission Date: 20140127
  Serious: Yes (Other)
  Sender: FDA-Public Use
  Company Number: US-PFIZER INC-2013029929

PATIENT
  Age: 48 Year
  Sex: Male
  Weight: 92.97 kg

DRUGS (11)
  1. REVATIO [Suspect]
     Indication: ATRIAL FIBRILLATION
     Dosage: 20 MG, 3X/DAY
     Dates: end: 20130115
  2. REVATIO [Suspect]
     Indication: CARDIAC DISORDER
  3. POTASSIUM [Concomitant]
     Dosage: 10 MG, 2X/DAY
  4. LISINOPRIL [Concomitant]
     Dosage: 2.5 MG, 2X/DAY
  5. METOPROLOL [Concomitant]
     Dosage: 25 MG, 2X/DAY
  6. IMODIUM [Concomitant]
     Dosage: 200 MG, DAILY
  7. FUROSEMIDE [Concomitant]
     Dosage: 40 MG, 2X/DAY
  8. LEVOTHYROXINE [Concomitant]
     Indication: THYROID DISORDER
     Dosage: 50 MG, DAILY
  9. ASPIRIN [Concomitant]
     Dosage: 81 MG, DAILY
  10. COUMADIN [Concomitant]
     Dosage: UNK
  11. VITAMIN B12 [Concomitant]
     Dosage: UNK

REACTIONS (4)
  - Dyspnoea [Unknown]
  - Hypertension [Unknown]
  - Malaise [Unknown]
  - Off label use [Recovered/Resolved]
